FAERS Safety Report 6209595-9 (Version None)
Quarter: 2009Q2

REPORT INFORMATION
  Report Type: 
  Country: None (occurrence: None)
  Receive Date: 20090601
  Receipt Date: 20090526
  Transmission Date: 20091009
  Serious: Yes (Other)
  Sender: FDA-Public Use
  Company Number: TR-ROXANE LABORATORIES, INC.-2009-RO-00531RO

PATIENT
  Age: 56 Year
  Sex: Female

DRUGS (4)
  1. CYCLOPHOSPHAMIDE [Suspect]
     Indication: STEM CELL TRANSPLANT
  2. ADRIBLASTINA [Suspect]
     Indication: ACUTE LEUKAEMIA
  3. CYTARABINE [Suspect]
     Indication: ACUTE LEUKAEMIA
  4. BUSULFAN [Suspect]
     Indication: STEM CELL TRANSPLANT

REACTIONS (2)
  - CARDIOTOXICITY [None]
  - PRINZMETAL ANGINA [None]
